FAERS Safety Report 5774825-4 (Version None)
Quarter: 2008Q2

REPORT INFORMATION
  Report Type: 
  Country: None (occurrence: None)
  Receive Date: 20080616
  Receipt Date: 20080616
  Transmission Date: 20081010
  Serious: Yes (Other)
  Sender: FDA-Public Use
  Company Number: None

PATIENT
  Sex: Female
  Weight: 62.5964 kg

DRUGS (1)
  1. NEUPRO 6MG PATCH SCHWARZ [Suspect]
     Indication: PARKINSON'S DISEASE
     Dosage: 6 MG  Q24HOURS TRANSDERMAL
     Route: 062
     Dates: start: 20071206, end: 20080423

REACTIONS (1)
  - APPLICATION SITE DISCOLOURATION [None]
